FAERS Safety Report 7492267-0 (Version None)
Quarter: 2011Q2

REPORT INFORMATION
  Report Type: 
  Country: None (occurrence: None)
  Receive Date: 20110519
  Receipt Date: 20110509
  Transmission Date: 20111010
  Serious: Yes (Other)
  Sender: FDA-Public Use
  Company Number: CA-ELI_LILLY_AND_COMPANY-CA201105004166

PATIENT
  Age: 50 Year

DRUGS (1)
  1. EFFIENT [Suspect]
     Dosage: UNK, UNKNOWN

REACTIONS (2)
  - THROMBOSIS [None]
  - CEREBROVASCULAR ACCIDENT [None]
